FAERS Safety Report 5861320-7 (Version None)
Quarter: 2008Q3

REPORT INFORMATION
  Report Type: 
  Country: None (occurrence: None)
  Receive Date: 20080827
  Receipt Date: 20080415
  Transmission Date: 20090109
  Serious: No
  Sender: FDA-Public Use
  Company Number: US-ABBOTT-08P-163-0447439-00

PATIENT
  Sex: Male
  Weight: 98.972 kg

DRUGS (5)
  1. NIASPAN [Suspect]
     Indication: BLOOD CHOLESTEROL INCREASED
     Dosage: 500MG TAB EACH DAY
     Route: 048
     Dates: start: 20080101, end: 20080201
  2. NIASPAN [Suspect]
     Dosage: 2-500MG TABS/NIGHT
     Route: 048
     Dates: start: 20080201, end: 20080301
  3. NIASPAN [Suspect]
     Dosage: 500MG TAB/DAY
     Route: 048
     Dates: start: 20080301
  4. ACETYLSALICYLIC ACID SRT [Suspect]
     Indication: DRUG USE FOR UNKNOWN INDICATION
     Route: 048
     Dates: start: 20080101, end: 20080301
  5. ROSUVASTATIN [Concomitant]
     Indication: BLOOD CHOLESTEROL INCREASED
     Dosage: 20MG/DAY
     Route: 048

REACTIONS (3)
  - FLUSHING [None]
  - PRURITUS [None]
  - RASH [None]
